FAERS Safety Report 8192925-9 (Version None)
Quarter: 2012Q1

REPORT INFORMATION
  Report Type: 
  Country: None (occurrence: None)
  Receive Date: 20120308
  Receipt Date: 20120301
  Transmission Date: 20120608
  Serious: Yes (Hospitalization, Other)
  Sender: FDA-Public Use
  Company Number: KR-BAYER-2011-016619

PATIENT
  Age: 65 Year
  Sex: Female
  Weight: 54 kg

DRUGS (51)
  1. GASMOTIN [Concomitant]
     Dosage: 15 MG, UNK
     Dates: start: 20110306
  2. SODIUM CHLORIDE [Concomitant]
     Dosage: 1000 ML, UNK
     Dates: start: 20110220, end: 20110223
  3. SORAFENIB (RAF KINASE INHIBITOR) [Suspect]
     Indication: THYROID CANCER METASTATIC
     Dosage: 800MG
     Route: 048
     Dates: start: 20100810, end: 20110220
  4. BIOFLOR [Concomitant]
     Indication: DYSPEPSIA
     Dosage: 847.5 MG, QD
     Route: 048
     Dates: start: 20110203, end: 20110204
  5. TANTUM [Concomitant]
     Indication: MUCOSAL INFLAMMATION
     Dosage: 100 ML, QD (SOLUTION)
     Route: 048
     Dates: start: 20100824
  6. MAGNESIUM OXIDE [Concomitant]
     Indication: CONSTIPATION
     Dosage: 500 MG, QD
     Route: 048
     Dates: start: 20110131, end: 20110201
  7. SODIUM CHLORIDE [Concomitant]
     Dosage: 1500 ML, QD
     Dates: start: 20100720, end: 20100720
  8. SODIUM CHLORIDE [Concomitant]
     Dosage: 1000 ML, UNK
     Dates: start: 20110227, end: 20110228
  9. SEPTRA [Concomitant]
     Indication: CYSTITIS
     Dosage: 1920 MG, QD
     Route: 048
     Dates: start: 20110207, end: 20110213
  10. ALFACALCIDOL [Concomitant]
     Dosage: 1 ?G, QD
     Dates: start: 20081013
  11. MAGNESIUM OXIDE [Concomitant]
     Dosage: 2250 MG, QD
     Route: 048
     Dates: start: 20110209, end: 20110210
  12. GASMOTIN [Concomitant]
     Indication: DYSPEPSIA
     Dosage: 5 MG, QD
     Route: 048
     Dates: start: 20110201, end: 20110203
  13. GASMOTIN [Concomitant]
     Dosage: 15 MG, QD
     Route: 048
     Dates: start: 20110206, end: 20110208
  14. SODIUM CHLORIDE [Concomitant]
     Dosage: 1500 ML, QD
     Route: 042
     Dates: start: 20110220, end: 20110220
  15. SODIUM CHLORIDE [Concomitant]
     Dosage: 1000 ML, QD
     Route: 042
     Dates: start: 20110202
  16. MADECASSOL [Concomitant]
     Indication: PROPHYLAXIS
     Dosage: 5 G, QD
     Route: 061
     Dates: start: 20110220
  17. BISACODYL [Concomitant]
     Dosage: 10 MG, QD
     Dates: start: 20100810, end: 20100823
  18. DUPHALAC [Concomitant]
     Indication: CONSTIPATION
     Dosage: Q2.68 ML, QD
     Route: 048
     Dates: start: 20110205, end: 20110205
  19. DUPHALAC [Concomitant]
     Dosage: 16.34 ML, QD
     Route: 048
     Dates: start: 20110209, end: 20110219
  20. SODIUM CHLORIDE [Concomitant]
     Indication: NUTRITIONAL SUPPORT
     Dosage: 500 ML, QD
     Route: 042
     Dates: start: 20110208, end: 20110208
  21. SODIUM CHLORIDE [Concomitant]
     Dosage: 1500 ML
     Dates: start: 20100720, end: 20100720
  22. CTRI LACTTOL POWDER [Concomitant]
     Dosage: 40 G, QD
     Dates: start: 20100718, end: 20100728
  23. ACETAMINOPHEN [Concomitant]
     Dosage: 2600 UNK, UNK
     Dates: start: 20110127, end: 20110128
  24. PLACEBO [Suspect]
     Indication: THYROID CANCER METASTATIC
     Dosage: 800 MG, QD
     Route: 048
     Dates: end: 20100727
  25. RINO EBASTEL [Concomitant]
     Indication: RHINITIS ALLERGIC
     Dosage: 130 ML, QD
     Route: 055
     Dates: start: 20110129, end: 20110130
  26. MAGNESIUM OXIDE [Concomitant]
     Dosage: 500 MG, QD
     Route: 048
     Dates: start: 20110104, end: 20110104
  27. MAGNESIUM OXIDE [Concomitant]
     Dosage: 1000 MG, QD
     Route: 048
     Dates: start: 20110211, end: 20110211
  28. MAGNESIUM OXIDE [Concomitant]
     Dosage: 750 MG, QD
     Route: 048
     Dates: start: 20110220, end: 20110225
  29. GASMOTIN [Concomitant]
     Dosage: 20 MG, QD
     Route: 048
     Dates: start: 20110205, end: 20110205
  30. DUPHALAC [Concomitant]
     Dosage: 16.34 ML, QD
     Route: 048
     Dates: start: 20110206, end: 20110206
  31. SYNTHROID [Concomitant]
     Indication: THYROID HORMONE REPLACEMENT THERAPY
     Dosage: 0.2 MG, QD
     Route: 048
     Dates: start: 20081013
  32. CODENAL [Concomitant]
     Indication: RHINITIS ALLERGIC
     Dosage: 180 ML, QD
     Route: 048
     Dates: start: 20110129, end: 20110129
  33. MAGNESIUM OXIDE [Concomitant]
     Dosage: 1500 MG, QD
     Route: 048
     Dates: start: 20110208, end: 20110208
  34. ACETAMINOPHEN [Concomitant]
     Dosage: 650 MG, UNK
     Dates: start: 20110208, end: 20110208
  35. ALLEGRA [Concomitant]
     Indication: RHINITIS ALLERGIC
     Dosage: 120 MG, QD
     Route: 048
     Dates: start: 20100824
  36. MAGNESIUM OXIDE [Concomitant]
     Dosage: 1000 MG, QD
     Route: 048
     Dates: start: 20110205, end: 20110207
  37. KABIVEN [Concomitant]
     Indication: MEDICAL DIET
     Dosage: 1920 ML, QD
     Route: 048
     Dates: start: 20110203, end: 20110204
  38. BACTROBAN [Concomitant]
     Indication: CYSTITIS
     Dosage: 40 MG, UNK
     Dates: start: 20110223, end: 20110223
  39. TRIAMCINOLONE ACETONIDE [Concomitant]
     Indication: MUCOSAL INFLAMMATION
     Dosage: 10 G, QD
     Route: 061
     Dates: start: 20110220
  40. ACETAMINOPHEN [Concomitant]
     Indication: PAIN
     Dosage: 1300 MG, UNK
     Dates: start: 20110126, end: 20110126
  41. BIOFLOR [Concomitant]
     Indication: CONSTIPATION
     Dosage: 847.5 MG, QD
     Route: 048
     Dates: start: 20100824, end: 20110202
  42. APETROL [Concomitant]
     Indication: DYSPEPSIA
     Dosage: 100 ML, QD
     Route: 048
     Dates: start: 20110127, end: 20110226
  43. MAGNESIUM OXIDE [Concomitant]
     Dosage: 1000 MG, QD
     Route: 048
     Dates: start: 20110202, end: 20110203
  44. METOCLOPRAMIDE HYDROCHLORIDE [Concomitant]
     Indication: DYSPEPSIA
     Dosage: 10 ML, QD
     Route: 042
     Dates: start: 20110201, end: 20110202
  45. BEARSE [Concomitant]
     Indication: DYSPEPSIA
     Dosage: 243.6 MG, QD
     Route: 048
     Dates: start: 20110203, end: 20110204
  46. DUPHALAC [Concomitant]
     Dosage: 32.68 ML, QD
     Route: 048
     Dates: start: 20110207, end: 20110208
  47. DEXAMETHASONE SODIUM PHOSPHATE [Concomitant]
     Indication: CYSTITIS
     Dosage: 5 MG, QD
     Route: 042
     Dates: start: 20110209, end: 20110209
  48. BACTROBAN [Concomitant]
     Indication: INFECTION PROPHYLAXIS
     Dosage: 10 G, QD
     Route: 061
     Dates: start: 20110220
  49. OSSOPAN [Concomitant]
     Dosage: 1660 MG, QD
     Dates: start: 20081013
  50. AGIO GRANULE [Concomitant]
     Dosage: 12 G, QD
     Dates: start: 20100810, end: 20100823
  51. ACETAMINOPHEN [Concomitant]
     Indication: BACK PAIN
     Dosage: 900 MG, QD
     Dates: start: 20110125, end: 20110131

REACTIONS (1)
  - RECTAL ULCER [None]
